FAERS Safety Report 15384933 (Version 1)
Quarter: 2018Q3

REPORT INFORMATION
  Report Type: Spontaneous
  Country: US (occurrence: US)
  Receive Date: 20180907
  Receipt Date: 20180907
  Transmission Date: 20181010
  Serious: No
  Sender: FDA-Public Use
  Company Number: None

PATIENT
  Age: 41 Year
  Sex: Female

DRUGS (2)
  1. HUMIRA [Suspect]
     Active Substance: ADALIMUMAB
  2. ENBREL [Suspect]
     Active Substance: ETANERCEPT
     Dates: start: 201712, end: 201804

REACTIONS (3)
  - Influenza like illness [None]
  - Rash [None]
  - Treatment failure [None]

NARRATIVE: CASE EVENT DATE: 20180907
